FAERS Safety Report 21270512 (Version 1)
Quarter: 2022Q3

REPORT INFORMATION
  Report Type: Spontaneous
  Country: US (occurrence: US)
  Receive Date: 20220830
  Receipt Date: 20220830
  Transmission Date: 20221027
  Serious: Yes (Hospitalization)
  Sender: FDA-Public Use
  Company Number: US-PFIZER INC-202201095517

PATIENT
  Age: 45 Year
  Sex: Female

DRUGS (1)
  1. PAXLOVID [Suspect]
     Active Substance: NIRMATRELVIR\RITONAVIR
     Indication: COVID-19 treatment
     Dosage: UNK
     Dates: start: 20220821, end: 20220825

REACTIONS (4)
  - Drug hypersensitivity [Recovering/Resolving]
  - Swollen tongue [Recovering/Resolving]
  - Tongue blistering [Recovering/Resolving]
  - Oropharyngeal blistering [Recovering/Resolving]

NARRATIVE: CASE EVENT DATE: 20220824
